FAERS Safety Report 5848928-X (Version None)
Quarter: 2008Q3

REPORT INFORMATION
  Report Type: 
  Country: None (occurrence: None)
  Receive Date: 20080819
  Receipt Date: 20080807
  Transmission Date: 20090109
  Serious: Yes (Hospitalization)
  Sender: FDA-Public Use
  Company Number: PHHO2008FR08491

PATIENT
  Sex: Male
  Weight: 67.9 kg

DRUGS (2)
  1. ERL 080A ERL+TAB [Suspect]
     Indication: RENAL TRANSPLANT
     Dosage: 1440 MG, DAILY
     Route: 048
     Dates: start: 20080220
  2. STEROIDS NOS [Concomitant]

REACTIONS (3)
  - POLYP [None]
  - POLYPECTOMY [None]
  - RECTAL HAEMORRHAGE [None]
